FAERS Safety Report 19396261 (Version 3)
Quarter: 2021Q3

REPORT INFORMATION
  Report Type: Report from Study
  Country: ES (occurrence: ES)
  Receive Date: 20210609
  Receipt Date: 20210831
  Transmission Date: 20211014
  Serious: Yes (Hospitalization, Other)
  Sender: FDA-Public Use
  Company Number: ES-BRISTOL-MYERS SQUIBB COMPANY-BMS-2021-031581

PATIENT
  Age: 83 Year
  Sex: Male
  Weight: 64 kg

DRUGS (9)
  1. MYCOSTATIN [Concomitant]
     Active Substance: NYSTATIN
     Indication: MUCOSAL INFLAMMATION
     Dosage: 1 DOSAGE FORM=3 UNIT NOS
     Route: 048
     Dates: start: 20210312
  2. FLUCONAZOL [Concomitant]
     Active Substance: FLUCONAZOLE
     Indication: MUCOSAL INFLAMMATION
     Dosage: 100 MILLIGRAM
     Route: 048
     Dates: start: 20210312
  3. ABSTRAL [Concomitant]
     Active Substance: FENTANYL CITRATE
     Indication: PUBIC PAIN
     Dosage: 1 DOSAGE FORM
     Route: 048
     Dates: start: 20210326
  4. OMEPRAZOL [OMEPRAZOLE] [Concomitant]
     Active Substance: OMEPRAZOLE
     Indication: PROPHYLAXIS
     Dosage: 20 MILLIGRAM
     Route: 048
     Dates: start: 20151124
  5. DUROGESIC [Concomitant]
     Active Substance: FENTANYL
     Indication: PUBIC PAIN
     Dosage: 1 DOSAGE FORM
     Route: 062
     Dates: start: 20210326
  6. AUGMENTINE [AMOXICILLIN;CLAVULANIC ACID] [Concomitant]
     Active Substance: AMOXICILLIN\CLAVULANIC ACID
     Indication: PROPHYLAXIS
     Dosage: 1 DOSAGE FORM
     Route: 048
     Dates: start: 202103
  7. PREDNISONE. [Concomitant]
     Active Substance: PREDNISONE
     Indication: PROSTATE CANCER METASTATIC
     Dosage: 10 MILLIGRAM
     Route: 065
     Dates: start: 20210305, end: 20210328
  8. DOCETAXEL. [Suspect]
     Active Substance: DOCETAXEL
     Indication: PROSTATE CANCER METASTATIC
     Dosage: 125.25 MILLIGRAM
     Route: 065
     Dates: start: 20210305, end: 20210305
  9. NIVOLUMAB [Suspect]
     Active Substance: NIVOLUMAB
     Indication: PROSTATE CANCER METASTATIC
     Dosage: 100 MILLILITER
     Route: 042
     Dates: start: 20210305, end: 20210305

REACTIONS (1)
  - Scrotal abscess [Recovered/Resolved]

NARRATIVE: CASE EVENT DATE: 20210329
